FAERS Safety Report 11886535 (Version 1)
Quarter: 2016Q1

REPORT INFORMATION
  Report Type: Spontaneous
  Country: US (occurrence: US)
  Receive Date: 20160104
  Receipt Date: 20160104
  Transmission Date: 20160526
  Serious: Yes (Hospitalization, Other)
  Sender: FDA-Public Use
  Company Number: US-APOTEX-2015AP015621

PATIENT
  Age: 45 Year
  Sex: Male

DRUGS (4)
  1. MYCOPHENOLATE MOFETIL. [Suspect]
     Active Substance: MYCOPHENOLATE MOFETIL
     Indication: IMMUNOSUPPRESSANT DRUG THERAPY
     Dosage: 1.5 G PER DAY
     Route: 065
  2. ALEMTUZUMAB [Concomitant]
     Active Substance: ALEMTUZUMAB
     Indication: PRODUCT USED FOR UNKNOWN INDICATION
     Dosage: 30 MG, SINGLE
     Route: 065
  3. TACROLIMUS. [Suspect]
     Active Substance: TACROLIMUS
     Indication: IMMUNOSUPPRESSANT DRUG THERAPY
     Dosage: (DOSE ADJUSTED FOR 12-H TROUGH) LEVELS (MEAN=9 NG/ML)
     Route: 065
  4. TACROLIMUS. [Suspect]
     Active Substance: TACROLIMUS
     Dosage: 12 HOUR TROUGH LEVEL OF 8-10 NG/DL
     Route: 065

REACTIONS (4)
  - Nervous system disorder [Recovering/Resolving]
  - Acute disseminated encephalomyelitis [Recovering/Resolving]
  - Respiratory tract infection [Recovering/Resolving]
  - Enterovirus infection [Recovering/Resolving]
